FAERS Safety Report 8890030 (Version 2)
Quarter: 2012Q4

REPORT INFORMATION
  Report Type: 
  Country: US (occurrence: US)
  Receive Date: 20121107
  Receipt Date: 20121203
  Transmission Date: 20130627
  Serious: No
  Sender: FDA-Public Use
  Company Number: US-PFIZER INC-2012271274

PATIENT
  Age: 52 Year
  Sex: Female

DRUGS (1)
  1. LEVOXYL [Suspect]
     Dosage: UNK
     Dates: start: 2003

REACTIONS (10)
  - Oedema [Unknown]
  - Feeling cold [Unknown]
  - Muscular weakness [Unknown]
  - Alopecia [Unknown]
  - Dyspepsia [Unknown]
  - Fatigue [Unknown]
  - Palpitations [Unknown]
  - Tachycardia [Unknown]
  - Dry skin [Unknown]
  - Product quality issue [Unknown]
